FAERS Safety Report 11300645 (Version 1)
Quarter: 2015Q3

REPORT INFORMATION
  Report Type: Spontaneous
  Country: US (occurrence: US)
  Receive Date: 20150722
  Receipt Date: 20150722
  Transmission Date: 20151125
  Serious: No
  Sender: FDA-Public Use
  Company Number: US-ELI_LILLY_AND_COMPANY-US201301007278

PATIENT
  Age: 12 Year

DRUGS (9)
  1. HUMATROPE [Suspect]
     Active Substance: SOMATROPIN
     Dosage: 1.2 MG, QD
  2. HUMATROPE [Suspect]
     Active Substance: SOMATROPIN
     Dosage: 1.2 MG, QD
  3. RESPIDON [Concomitant]
     Dosage: 1.5 DF, EACH MORNING
     Route: 065
  4. CLONIDINE. [Concomitant]
     Active Substance: CLONIDINE
     Dosage: 0.1 MG, EACH MORNING
     Route: 065
  5. CLONIDINE. [Concomitant]
     Active Substance: CLONIDINE
     Dosage: 2 DF, EACH EVENING
     Route: 065
  6. VYVANSE [Concomitant]
     Active Substance: LISDEXAMFETAMINE DIMESYLATE
     Dosage: UNK, UNKNOWN
     Route: 065
  7. HUMATROPE [Suspect]
     Active Substance: SOMATROPIN
     Dosage: 1.2 MG, QD
  8. RESPIDON [Concomitant]
     Dosage: 0.5 DF, EACH EVENING
     Route: 065
  9. REMERON [Concomitant]
     Active Substance: MIRTAZAPINE
     Dosage: 1 DF, EACH EVENING
     Route: 065

REACTIONS (3)
  - Attention deficit/hyperactivity disorder [Unknown]
  - Sleep disorder [Unknown]
  - Bipolar disorder [Unknown]
